FAERS Safety Report 9887823 (Version 1)
Quarter: 2013Q4

REPORT INFORMATION
  Report Type: Spontaneous
  Country: US (occurrence: None)
  Receive Date: 20131223
  Receipt Date: 20131223
  Transmission Date: 20140711
  Serious: No
  Sender: FDA-Public Use
  Company Number: 220593LEO

PATIENT
  Age: 46 Year
  Sex: Female

DRUGS (1)
  1. PICATO (0.015%, GEL) [Suspect]
     Indication: ACTINIC KERATOSIS
     Dosage: DAILY X 1 DAY
     Route: 061
     Dates: start: 20130214

REACTIONS (11)
  - Swelling face [None]
  - Application site pain [None]
  - Application site pain [None]
  - Application site vesicles [None]
  - Application site exfoliation [None]
  - Discomfort [None]
  - Application site erosion [None]
  - Application site erythema [None]
  - Application site swelling [None]
  - Drug administration error [None]
  - Incorrect drug administration duration [None]
